FAERS Safety Report 6140015-9 (Version None)
Quarter: 2009Q2

REPORT INFORMATION
  Report Type: 
  Country: None (occurrence: None)
  Receive Date: 20090401
  Receipt Date: 20090331
  Transmission Date: 20091009
  Serious: Yes (Other)
  Sender: FDA-Public Use
  Company Number: CN-PFIZER INC-2009191431

PATIENT

DRUGS (6)
  1. LIPITOR [Suspect]
     Dosage: FREQUENCY: EVERY DAY;
     Route: 048
     Dates: start: 20081001, end: 20081101
  2. ROXITHROMYCIN [Suspect]
     Indication: NASOPHARYNGITIS
     Route: 048
     Dates: end: 20081101
  3. APROVEL [Concomitant]
     Dosage: UNK
     Route: 048
  4. METOPROLOL TARTRATE [Concomitant]
     Dosage: UNK
     Route: 048
  5. AMLODIPINE BESILATE [Concomitant]
     Dosage: UNK
     Route: 048
  6. ASPIRIN [Concomitant]
     Dosage: UNK
     Route: 048

REACTIONS (3)
  - BLOOD CREATINE PHOSPHOKINASE INCREASED [None]
  - CHEST PAIN [None]
  - MYOGLOBIN BLOOD INCREASED [None]
